FAERS Safety Report 23420351 (Version 2)
Quarter: 2024Q1

REPORT INFORMATION
  Report Type: Spontaneous
  Country: US (occurrence: US)
  Receive Date: 20240119
  Receipt Date: 20240126
  Transmission Date: 20240410
  Serious: Yes (Other)
  Sender: FDA-Public Use
  Company Number: US-JNJFOC-20240144079

PATIENT
  Sex: Female

DRUGS (2)
  1. ACETAMINOPHEN [Interacting]
     Active Substance: ACETAMINOPHEN
     Indication: Pain management
     Route: 065
  2. WARFARIN [Interacting]
     Active Substance: WARFARIN
     Indication: Anticoagulant therapy
     Route: 065

REACTIONS (6)
  - Haemorrhage [Recovered/Resolved]
  - Incorrect dose administered [Recovered/Resolved]
  - Anticoagulation drug level above therapeutic [Recovered/Resolved]
  - Drug interaction [Unknown]
  - Swelling [Unknown]
  - Pain [Recovering/Resolving]
